FAERS Safety Report 24699033 (Version 1)
Quarter: 2024Q4

REPORT INFORMATION
  Report Type: Spontaneous
  Country: CN (occurrence: CA)
  Receive Date: 20241205
  Receipt Date: 20241205
  Transmission Date: 20250115
  Serious: Yes (Hospitalization, Other)
  Sender: ALEXION PHARMACEUTICALS
  Company Number: CN-ASTRAZENECA-202411CHN024948CN

PATIENT
  Age: 52 Year
  Weight: 61 kg

DRUGS (6)
  1. TAGRISSO [Suspect]
     Active Substance: OSIMERTINIB
     Indication: Treatment noncompliance
     Dosage: 80 MILLIGRAM
  2. TAGRISSO [Suspect]
     Active Substance: OSIMERTINIB
     Dosage: 80 MILLIGRAM
  3. TAGRISSO [Suspect]
     Active Substance: OSIMERTINIB
     Dosage: 80 MILLIGRAM
  4. TAGRISSO [Suspect]
     Active Substance: OSIMERTINIB
     Dosage: 80 MILLIGRAM
  5. GEFITINIB [Suspect]
     Active Substance: GEFITINIB
     Dosage: 0.25 GRAM
  6. GEFITINIB [Suspect]
     Active Substance: GEFITINIB
     Dosage: 0.25 GRAM

REACTIONS (1)
  - Intestinal ulcer perforation [Recovering/Resolving]
